FAERS Safety Report 4975870-9 (Version None)
Quarter: 2006Q2

REPORT INFORMATION
  Report Type: 
  Country: None (occurrence: None)
  Receive Date: 20060411
  Receipt Date: 20060327
  Transmission Date: 20061013
  Serious: No
  Sender: FDA-Public Use
  Company Number: 6021652

PATIENT
  Sex: Male

DRUGS (1)
  1. AMNESTEEM [Suspect]
     Indication: ACNE CYSTIC
     Dosage: 40,000 MG, 2 IN 1 D, ORAL
     Route: 048
     Dates: start: 20060311, end: 20060325

REACTIONS (2)
  - INTENTIONAL SELF-INJURY [None]
  - PERSONALITY DISORDER [None]
